FAERS Safety Report 9092539 (Version 1)
Quarter: 2013Q1

REPORT INFORMATION
  Report Type: Spontaneous
  Country: US (occurrence: None)
  Receive Date: 20130213
  Receipt Date: 20130213
  Transmission Date: 20140127
  Serious: Yes (Death)
  Sender: FDA-Public Use
  Company Number: None

PATIENT
  Age: 87 Year
  Sex: Male
  Weight: 94.4 kg

DRUGS (1)
  1. PRADAXA 150MG BOEHRINGER INGLEHEIM [Suspect]
     Indication: ATRIAL FIBRILLATION
     Route: 048
     Dates: start: 20110101, end: 20130123

REACTIONS (4)
  - Cerebellar haemorrhage [None]
  - Haemodialysis [None]
  - Pupil fixed [None]
  - Areflexia [None]
